FAERS Safety Report 13646610 (Version 2)
Quarter: 2017Q3

REPORT INFORMATION
  Report Type: Spontaneous
  Country: US (occurrence: US)
  Receive Date: 20170613
  Receipt Date: 20170721
  Transmission Date: 20171127
  Serious: No
  Sender: FDA-Public Use
  Company Number: US-PFIZER INC-2017252597

PATIENT
  Age: 54 Year
  Sex: Female

DRUGS (1)
  1. EUCRISA [Suspect]
     Active Substance: CRISABOROLE
     Indication: PSORIASIS
     Dosage: TWICE DAILY USE A LITTLE IN THE MORNING AND MORE AT NIGHT WITH GLOVES

REACTIONS (2)
  - Skin fissures [Not Recovered/Not Resolved]
  - Product use in unapproved indication [Unknown]
